FAERS Safety Report 23572600 (Version 2)
Quarter: 2024Q3

REPORT INFORMATION
  Report Type: Spontaneous
  Country: US (occurrence: US)
  Receive Date: 20240227
  Receipt Date: 20240822
  Transmission Date: 20241017
  Serious: No
  Sender: AVADEL CNS PHARMA
  Company Number: US-AVADEL CNS PHARMACEUTICALS, LLC-2023AVA00484

PATIENT
  Sex: Female

DRUGS (5)
  1. LUMRYZ [Suspect]
     Active Substance: SODIUM OXYBATE
     Indication: Narcolepsy
     Dosage: 4.5 G, ONCE NIGHTLY
     Dates: start: 20231130, end: 2023
  2. LUMRYZ [Suspect]
     Active Substance: SODIUM OXYBATE
     Indication: Cataplexy
     Dosage: 4.5 G, ONCE NIGHTLY
     Dates: start: 2023, end: 202312
  3. LUMRYZ [Suspect]
     Active Substance: SODIUM OXYBATE
     Dosage: ^LOWER DOSE^, 1X/DAY
     Dates: end: 2024
  4. CITALOPRAM [Concomitant]
     Active Substance: CITALOPRAM\CITALOPRAM HYDROBROMIDE
  5. VITAMINS NOS [Concomitant]
     Active Substance: VITAMINS

REACTIONS (11)
  - Terminal insomnia [Not Recovered/Not Resolved]
  - Ear infection [Unknown]
  - Emotional distress [Not Recovered/Not Resolved]
  - Blood pressure increased [Not Recovered/Not Resolved]
  - Headache [Not Recovered/Not Resolved]
  - Nausea [Recovering/Resolving]
  - Dizziness [Unknown]
  - Diarrhoea [Not Recovered/Not Resolved]
  - Anxiety [Not Recovered/Not Resolved]
  - Product administration interrupted [Not Recovered/Not Resolved]
  - Intentional dose omission [Not Recovered/Not Resolved]

NARRATIVE: CASE EVENT DATE: 20230101
